FAERS Safety Report 5003952-4 (Version None)
Quarter: 2006Q2

REPORT INFORMATION
  Report Type: 
  Country: None (occurrence: None)
  Receive Date: 20060515
  Receipt Date: 20060515
  Transmission Date: 20061013
  Serious: Yes (Other)
  Sender: FDA-Public Use
  Company Number: None

PATIENT
  Age: 45 Year
  Sex: Female
  Weight: 86.1834 kg

DRUGS (3)
  1. PAXIL [Suspect]
     Indication: ANXIETY
     Dosage: ONE EVERY NIGHT   PO
     Route: 048
     Dates: start: 20020123, end: 20020701
  2. PAXIL [Suspect]
     Indication: DEPRESSION
     Dosage: ONE EVERY NIGHT   PO
     Route: 048
     Dates: start: 20020123, end: 20020701
  3. PAXIL [Suspect]
     Indication: PANIC ATTACK
     Dosage: ONE EVERY NIGHT   PO
     Route: 048
     Dates: start: 20020123, end: 20020701

REACTIONS (7)
  - ARTIFICIAL CROWN PROCEDURE [None]
  - BRUXISM [None]
  - FACIAL PAIN [None]
  - INSOMNIA [None]
  - NECK PAIN [None]
  - PAIN IN JAW [None]
  - TOOTH EXTRACTION [None]
